FAERS Safety Report 8821797 (Version 5)
Quarter: 2012Q4

REPORT INFORMATION
  Report Type: Report from Study
  Country: DE (occurrence: DE)
  Receive Date: 20121002
  Receipt Date: 20121218
  Transmission Date: 20130627
  Serious: Yes (Hospitalization)
  Sender: FDA-Public Use
  Company Number: DE-VERTEX PHARMACEUTICAL INC.-2012-022039

PATIENT
  Sex: Male
  Weight: 83 kg

DRUGS (14)
  1. VX-950 (TELAPREVIR) [Suspect]
     Indication: HEPATITIS C
     Dosage: 2250 mg, qd
     Route: 048
     Dates: start: 20120718, end: 20120923
  2. REBETOL [Suspect]
     Indication: HEPATITIS C
     Dosage: Dosage Form: Unknown
     Route: 048
     Dates: start: 20120928
  3. PEGINTRON [Suspect]
     Indication: HEPATITIS C
     Dosage: 100 ?g, UNK
     Route: 058
     Dates: start: 20120928
  4. ALLOPURINOL [Suspect]
     Indication: HYPERURICAEMIA
     Dosage: Dosage Form: Unspecified
     Route: 048
     Dates: end: 20121009
  5. PREDNISOLONE [Suspect]
     Indication: ERYTHEMA MULTIFORME
     Dosage: Dosage Form: Unspecified
     Route: 065
  6. PREDNISOLONE [Suspect]
     Indication: RASH
  7. PREDNISOLONE [Suspect]
     Indication: DERMATITIS EXFOLIATIVE
  8. PREDNISOLONE [Suspect]
     Indication: UNEVALUABLE EVENT
     Dosage: 50 mg, UNK
  9. PREDNISOLONE [Suspect]
     Dosage: 40 mg, UNK
     Dates: start: 20121003, end: 20121003
  10. PREDNISOLONE [Suspect]
     Dosage: 30 mg, UNK
     Dates: start: 20121004, end: 20121004
  11. PREDNISOLONE [Suspect]
     Dosage: 20 mg, UNK
     Dates: start: 20121004, end: 20121004
  12. PREDNISOLONE [Suspect]
     Dosage: 50 mg, UNK
     Dates: start: 20121010, end: 20121010
  13. PREDNISOLONE [Suspect]
     Dosage: 25 mg, UNK
     Dates: start: 20121011, end: 20121018
  14. OTHER DRUGS (UNSPECIFIED) [Concomitant]
     Indication: PRODUCT USED FOR UNKNOWN INDICATION
     Route: 065

REACTIONS (12)
  - Erythema multiforme [Unknown]
  - Drug eruption [Unknown]
  - Dermatitis exfoliative [Unknown]
  - Rash [Recovered/Resolved]
  - Hypocalcaemia [Unknown]
  - Pharyngitis [Unknown]
  - Fungal infection [Unknown]
  - Genitourinary tract infection [Unknown]
  - Normochromic normocytic anaemia [Unknown]
  - Oral candidiasis [Unknown]
  - Thrombocytopenia [Unknown]
  - Diabetes mellitus [Recovered/Resolved]
